FAERS Safety Report 9680600 (Version 3)
Quarter: 2014Q1

REPORT INFORMATION
  Report Type: Spontaneous
  Country: US (occurrence: US)
  Receive Date: 20131111
  Receipt Date: 20140123
  Transmission Date: 20141002
  Serious: No
  Sender: FDA-Public Use
  Company Number: US-PFIZER INC-2013316454

PATIENT
  Age: 66 Year
  Sex: Male

DRUGS (3)
  1. INLYTA [Suspect]
     Indication: RENAL CANCER
     Dosage: 5 MG, DAILY
     Dates: start: 20120928
  2. INLYTA [Suspect]
     Dosage: 7 MG, UNK
     Dates: start: 20121003
  3. INLYTA [Suspect]
     Dosage: 5 MG, 1X/DAY
     Dates: start: 20121218

REACTIONS (3)
  - Asthenia [Unknown]
  - Local swelling [Unknown]
  - Pain in extremity [Unknown]
